FAERS Safety Report 6383409-9 (Version None)
Quarter: 2009Q4

REPORT INFORMATION
  Report Type: 
  Country: None (occurrence: None)
  Receive Date: 20091001
  Receipt Date: 20090921
  Transmission Date: 20100525
  Serious: Yes (Hospitalization)
  Sender: FDA-Public Use
  Company Number: GB-RANBAXY-2009RR-28203

PATIENT
  Age: 83 Year
  Sex: Male

DRUGS (7)
  1. AMOXICILLIN AND CLAVULANATE POTASSIUM [Suspect]
     Indication: PNEUMONIA ASPIRATION
     Dosage: 1.2 G, UNK
     Route: 042
     Dates: start: 20090714, end: 20090716
  2. AMOXICILLIN AND CLAVULANATE POTASSIUM [Suspect]
     Indication: PNEUMONIA ASPIRATION
     Dosage: 625 MG, UNK
     Route: 048
     Dates: start: 20090717, end: 20090719
  3. AMOXICILLIN AND CLAVULANATE POTASSIUM [Suspect]
     Dosage: UNK
     Dates: start: 20090722, end: 20090723
  4. CABERGOLINE [Concomitant]
     Indication: PARKINSON'S DISEASE
     Dosage: 2 MG, QD
     Route: 048
     Dates: end: 20090727
  5. CO-BENELDOPA [Concomitant]
     Indication: PARKINSON'S DISEASE
     Dosage: 1 DF, UNK
     Route: 048
  6. PARACETAMOL [Concomitant]
     Indication: PAIN
     Dosage: 1 G, QID
     Route: 048
     Dates: end: 20090713
  7. ROTIGOTINE [Concomitant]
     Indication: PARKINSON'S DISEASE
     Dosage: 8 MG, QD
     Route: 061
     Dates: start: 20090712

REACTIONS (1)
  - NEUTROPENIA [None]
